FAERS Safety Report 6033059-9 (Version None)
Quarter: 2009Q1

REPORT INFORMATION
  Report Type: 
  Country: None (occurrence: None)
  Receive Date: 20090109
  Receipt Date: 20081229
  Transmission Date: 20090719
  Serious: Yes (Other)
  Sender: FDA-Public Use
  Company Number: US-PFIZER INC-2008097025

PATIENT
  Sex: Female

DRUGS (2)
  1. FEMARA [Suspect]
     Indication: BREAST CANCER
     Dosage: UNK
     Dates: start: 20071017
  2. AROMASIN [Suspect]
     Dosage: PRODUCT NOT TAKEN

REACTIONS (6)
  - ARTHROPATHY [None]
  - BACK PAIN [None]
  - BONE PAIN [None]
  - HOT FLUSH [None]
  - JOINT INJURY [None]
  - OEDEMA PERIPHERAL [None]
